FAERS Safety Report 4352917-4 (Version None)
Quarter: 2004Q2

REPORT INFORMATION
  Report Type: 
  Country: None (occurrence: None)
  Receive Date: 20040429
  Receipt Date: 20040414
  Transmission Date: 20050107
  Serious: Yes (Hospitalization)
  Sender: FDA-Public Use
  Company Number: A044-002-004598

PATIENT
  Sex: Female

DRUGS (7)
  1. ARICEPT [Suspect]
     Indication: DEMENTIA ALZHEIMER'S TYPE
     Dosage: 10 MG, 1 IN 1 D, ORAL
     Route: 048
     Dates: start: 20030701
  2. ALPRAZOLAM [Suspect]
     Indication: AGITATION
     Dosage: 0.25 MG, 2 IN 1 D, ORAL
     Route: 048
     Dates: start: 20030801
  3. FERROUS SULPHATE (FERROUS SULFATE) [Concomitant]
  4. OMEPRAZOLE [Concomitant]
  5. ROFECOXIB [Concomitant]
  6. TRAMADOL HCL [Concomitant]
  7. PHENYTOIN [Concomitant]

REACTIONS (3)
  - AGITATION [None]
  - DISINHIBITION [None]
  - PSYCHOMOTOR HYPERACTIVITY [None]
